FAERS Safety Report 16354125 (Version 5)
Quarter: 2022Q2

REPORT INFORMATION
  Report Type: Spontaneous
  Country: US (occurrence: US)
  Receive Date: 20190524
  Receipt Date: 20220502
  Transmission Date: 20220721
  Serious: No
  Sender: FDA-Public Use
  Company Number: US-PFIZER INC-2018161958

PATIENT
  Age: 81 Year
  Sex: Female
  Weight: 73 kg

DRUGS (7)
  1. LYRICA [Suspect]
     Active Substance: PREGABALIN
     Indication: Arthralgia
     Dosage: 75 MG, 2X/DAY
     Route: 048
  2. LYRICA [Suspect]
     Active Substance: PREGABALIN
     Indication: Pain
     Dosage: 75 MG, 1X/DAY
  3. LYRICA [Suspect]
     Active Substance: PREGABALIN
     Indication: Cervical spinal stenosis
     Dosage: 100 MG, TWICE A DAY (1 CAPSULE BID 90 DAYS)
     Route: 048
  4. LYRICA [Suspect]
     Active Substance: PREGABALIN
     Indication: Neuralgia
  5. LYRICA [Suspect]
     Active Substance: PREGABALIN
     Indication: Neuropathy peripheral
  6. LYRICA [Suspect]
     Active Substance: PREGABALIN
     Indication: Back pain
  7. NARCO [Concomitant]
     Indication: Pain
     Dosage: UNK, 3X/DAY (5/325MG)
     Route: 048

REACTIONS (5)
  - Intentional product use issue [Unknown]
  - Malaise [Unknown]
  - Arthritis [Not Recovered/Not Resolved]
  - Body height decreased [Unknown]
  - Immune system disorder [Unknown]
